FAERS Safety Report 7525892-9 (Version None)
Quarter: 2011Q2

REPORT INFORMATION
  Report Type: 
  Country: None (occurrence: None)
  Receive Date: 20110606
  Receipt Date: 20110527
  Transmission Date: 20111010
  Serious: Yes (Hospitalization)
  Sender: FDA-Public Use
  Company Number: B0661318A

PATIENT
  Sex: Female
  Weight: 73 kg

DRUGS (8)
  1. NEULASTA [Suspect]
  2. DOCETAXEL [Suspect]
     Indication: BREAST CANCER
     Dosage: 187MG EVERY 3 WEEKS
     Route: 042
     Dates: start: 20100511
  3. EPIRUBICIN [Suspect]
     Indication: BREAST CANCER
     Dosage: 168MG EVERY 3 WEEKS
     Route: 042
     Dates: start: 20100216
  4. CYCLOPHOSPHAMIDE [Suspect]
     Indication: BREAST CANCER
     Dosage: 1122MG EVERY 3 WEEKS
     Route: 042
     Dates: start: 20100216
  5. LOPERAMIDE [Suspect]
  6. DEXAMETHASONE [Suspect]
  7. GRANISETRON [Suspect]
  8. LAPATINIB [Suspect]
     Indication: BREAST CANCER
     Dosage: 1000MG PER DAY
     Route: 048
     Dates: start: 20100216

REACTIONS (3)
  - UROSEPSIS [None]
  - PYREXIA [None]
  - PYELONEPHRITIS [None]
